FAERS Safety Report 10075718 (Version 1)
Quarter: 2014Q2

REPORT INFORMATION
  Report Type: Spontaneous
  Country: AT (occurrence: AT)
  Receive Date: 20140414
  Receipt Date: 20140414
  Transmission Date: 20141212
  Serious: Yes (Death)
  Sender: FDA-Public Use
  Company Number: AT-INCYTE CORPORATION-2014IN000912

PATIENT
  Sex: Male

DRUGS (1)
  1. JAKAVI [Suspect]
     Indication: MYELOFIBROSIS
     Dosage: UNK UNK, HALF DOSAGE FOR A YEAR
     Route: 065

REACTIONS (1)
  - General physical health deterioration [Fatal]
